FAERS Safety Report 4458302-9 (Version None)
Quarter: 2004Q3

REPORT INFORMATION
  Report Type: 
  Country: None (occurrence: None)
  Receive Date: 20040917
  Receipt Date: 20040122
  Transmission Date: 20050211
  Serious: Yes (Hospitalization)
  Sender: FDA-Public Use
  Company Number: US-JNJFOC-20040104813

PATIENT
  Sex: Female

DRUGS (7)
  1. TOPAMAX [Suspect]
     Indication: DRUG USE FOR UNKNOWN INDICATION
     Dosage: SEE IMAGE
     Route: 048
  2. HALDOL [Suspect]
     Indication: DRUG USE FOR UNKNOWN INDICATION
     Dosage: 10 MG, 3 IN 1 DAY, ORAL
     Route: 048
  3. COGENTIN [Concomitant]
  4. ZOLOFT [Concomitant]
  5. TYLENOL [Concomitant]
  6. ABILIFY (ARIPIIPRAZOLE) [Concomitant]
  7. REMERON [Concomitant]

REACTIONS (5)
  - CONFUSIONAL STATE [None]
  - DEPRESSION SUICIDAL [None]
  - DISSOCIATION [None]
  - PARANOIA [None]
  - SELF INJURIOUS BEHAVIOUR [None]
